FAERS Safety Report 6920102-5 (Version None)
Quarter: 2010Q3

REPORT INFORMATION
  Report Type: 
  Country: None (occurrence: None)
  Receive Date: 20100811
  Receipt Date: 20100722
  Transmission Date: 20110219
  Serious: Yes (Death)
  Sender: FDA-Public Use
  Company Number: US-GILEAD-2010-0030581

PATIENT
  Sex: Female
  Weight: 28.2 kg

DRUGS (9)
  1. LETAIRIS [Suspect]
     Indication: PULMONARY ARTERIAL HYPERTENSION
     Route: 048
     Dates: start: 20100317
  2. LASIX [Concomitant]
  3. ENALAPRIL [Concomitant]
  4. ASPIRIN [Concomitant]
  5. DILT-CD [Concomitant]
  6. PENTOXIL [Concomitant]
  7. SYNTHROID [Concomitant]
  8. METFORMIN HCL [Concomitant]
  9. PROTONIX [Concomitant]

REACTIONS (1)
  - DEATH [None]
